FAERS Safety Report 5820469-5 (Version None)
Quarter: 2008Q3

REPORT INFORMATION
  Report Type: 
  Country: None (occurrence: None)
  Receive Date: 20080724
  Receipt Date: 20071031
  Transmission Date: 20090109
  Serious: Yes (Hospitalization)
  Sender: FDA-Public Use
  Company Number: A0668141A

PATIENT
  Age: 50 Year
  Sex: Female
  Weight: 101.8 kg

DRUGS (2)
  1. AVANDIA [Suspect]
     Dosage: 4MG PER DAY
     Route: 048
     Dates: start: 20061218, end: 20070101
  2. SYNTHROID [Concomitant]
     Indication: HYPOTHYROIDISM
     Dosage: .075U PER DAY
     Route: 065
     Dates: start: 20061201

REACTIONS (3)
  - FOOT FRACTURE [None]
  - HUMERUS FRACTURE [None]
  - LOWER LIMB FRACTURE [None]
